FAERS Safety Report 6613595-4 (Version None)
Quarter: 2010Q1

REPORT INFORMATION
  Report Type: 
  Country: None (occurrence: None)
  Receive Date: 20100304
  Receipt Date: 20100223
  Transmission Date: 20100710
  Serious: Yes (Other)
  Sender: FDA-Public Use
  Company Number: US-ROCHE-681188

PATIENT
  Age: 71 Year
  Sex: Female
  Weight: 47.7 kg

DRUGS (1)
  1. BONIVA [Suspect]
     Indication: ILL-DEFINED DISORDER
     Route: 048

REACTIONS (2)
  - DRUG HYPERSENSITIVITY [None]
  - WRIST FRACTURE [None]
